FAERS Safety Report 4738606-2 (Version None)
Quarter: 2005Q3

REPORT INFORMATION
  Report Type: 
  Country: None (occurrence: None)
  Receive Date: 20050809
  Receipt Date: 20050809
  Transmission Date: 20060218
  Serious: No
  Sender: FDA-Public Use
  Company Number: None

PATIENT
  Sex: Female
  Weight: 47.1741 kg

DRUGS (7)
  1. DURAGESIC-100 [Suspect]
     Indication: HEADACHE
     Dosage: SEE IMAGE
  2. DURAGESIC-100 [Suspect]
     Indication: NECK PAIN
     Dosage: SEE IMAGE
  3. DURAGESIC-100 [Suspect]
     Indication: PAIN
     Dosage: SEE IMAGE
  4. SENNA [Concomitant]
  5. JOBST GLOVE [Concomitant]
  6. PREVACID [Concomitant]
  7. REMERON [Concomitant]

REACTIONS (14)
  - DISTURBANCE IN ATTENTION [None]
  - FEELING COLD [None]
  - HEADACHE [None]
  - HYPERHIDROSIS [None]
  - HYPERSENSITIVITY [None]
  - HYPERSOMNIA [None]
  - INTESTINAL FUNCTIONAL DISORDER [None]
  - LETHARGY [None]
  - MEMORY IMPAIRMENT [None]
  - NAUSEA [None]
  - NECK PAIN [None]
  - NEUROPATHIC PAIN [None]
  - ROAD TRAFFIC ACCIDENT [None]
  - SWELLING [None]
